FAERS Safety Report 14851089 (Version 1)
Quarter: 2018Q2

REPORT INFORMATION
  Report Type: Spontaneous
  Country: FR (occurrence: FR)
  Receive Date: 20180507
  Receipt Date: 20180507
  Transmission Date: 20180711
  Serious: Yes (Other)
  Sender: FDA-Public Use
  Company Number: FR-MERCK KGAA-2047255

PATIENT
  Age: 68 Year
  Sex: Female
  Weight: 79 kg

DRUGS (6)
  1. THYROFIX [Suspect]
     Active Substance: LEVOTHYROXINE SODIUM
     Route: 048
     Dates: end: 20180228
  2. NOVOTHYROX [Suspect]
     Active Substance: LEVOTHYROXINE SODIUM
     Indication: HYPOTHYROIDISM
     Route: 048
     Dates: end: 201712
  3. NOVOTHYROX [Suspect]
     Active Substance: LEVOTHYROXINE SODIUM
     Route: 048
     Dates: end: 20180315
  4. EUTHYROX [Suspect]
     Active Substance: LEVOTHYROXINE SODIUM
     Route: 048
  5. NOVOTHYROX [Suspect]
     Active Substance: LEVOTHYROXINE SODIUM
     Route: 048
     Dates: start: 201704, end: 201710
  6. L THYROXIN HENNING [Suspect]
     Active Substance: LEVOTHYROXINE SODIUM
     Route: 048
     Dates: end: 20180304

REACTIONS (12)
  - Gastrointestinal motility disorder [Recovering/Resolving]
  - Facial pain [Recovered/Resolved]
  - Pain in extremity [Not Recovered/Not Resolved]
  - Fatigue [Not Recovered/Not Resolved]
  - Blood thyroid stimulating hormone [Recovered/Resolved]
  - Breast pain [Recovered/Resolved]
  - Neck pain [Recovered/Resolved]
  - Muscle spasms [Recovering/Resolving]
  - Headache [Recovered/Resolved]
  - Hypertensive crisis [Recovering/Resolving]
  - Abdominal pain upper [Recovered/Resolved]
  - Alopecia [Recovering/Resolving]

NARRATIVE: CASE EVENT DATE: 201704
